FAERS Safety Report 5733746-3 (Version None)
Quarter: 2008Q2

REPORT INFORMATION
  Report Type: 
  Country: None (occurrence: None)
  Receive Date: 20080509
  Receipt Date: 20080429
  Transmission Date: 20081010
  Serious: Yes (Other)
  Sender: FDA-Public Use
  Company Number: BR-PFIZER INC-2008037747

PATIENT
  Age: 34 Year
  Sex: Female
  Weight: 72 kg

DRUGS (1)
  1. DOSTINEX [Suspect]
     Indication: HYPOPHYSITIS
     Route: 048

REACTIONS (2)
  - THYROID DISORDER [None]
  - WEIGHT INCREASED [None]
